FAERS Safety Report 5262932-4 (Version None)
Quarter: 2007Q1

REPORT INFORMATION
  Report Type: 
  Country: None (occurrence: None)
  Receive Date: 20070312
  Receipt Date: 20070307
  Transmission Date: 20070707
  Serious: Yes (Hospitalization, Other)
  Sender: FDA-Public Use
  Company Number: US-SHR-US-2006-026735

PATIENT
  Sex: Female

DRUGS (1)
  1. MIRENA [Suspect]
     Dosage: 20 A?G/DAY, CONT
     Route: 015
     Dates: start: 20060904, end: 20060911

REACTIONS (3)
  - ASTHENIA [None]
  - VAGINAL HAEMORRHAGE [None]
  - VITAL FUNCTIONS ABNORMAL [None]
